FAERS Safety Report 10080580 (Version 2)
Quarter: 2014Q2

REPORT INFORMATION
  Report Type: Report from Study
  Country: AU (occurrence: AU)
  Receive Date: 20140416
  Receipt Date: 20140416
  Transmission Date: 20141212
  Serious: Yes (Hospitalization)
  Sender: FDA-Public Use
  Company Number: AU-ROCHE-1356406

PATIENT
  Age: 60 Year
  Sex: Male
  Weight: 84.8 kg

DRUGS (20)
  1. VISMODEGIB [Suspect]
     Indication: BASAL CELL CARCINOMA
     Dosage: DATE OF LAST DOSE PRIOR TO SAE: 19/FEB/2014
     Route: 048
     Dates: start: 20130827
  2. TARGIN [Concomitant]
     Indication: PAIN
     Dosage: 5/2.5 MG
     Route: 048
     Dates: start: 201106
  3. TARGIN [Concomitant]
     Dosage: TARGIN CR ?TOTAL DAILY DOSE = 20-40 MG.
     Route: 065
     Dates: start: 20140111
  4. PANAMAX [Concomitant]
     Indication: PAIN
     Route: 048
     Dates: start: 200006
  5. TRANSIDERM NITRO [Concomitant]
     Indication: PROPHYLAXIS
     Route: 062
     Dates: start: 199006
  6. GABAPENTIN [Concomitant]
     Indication: PAIN
     Route: 048
     Dates: start: 200806
  7. EZETIMIBE [Concomitant]
     Indication: PROPHYLAXIS
     Route: 048
     Dates: start: 200506
  8. MINAX [Concomitant]
     Indication: HYPERTENSION
     Route: 048
     Dates: start: 200506
  9. AMLODIPINE [Concomitant]
     Indication: HYPERTENSION
     Route: 048
     Dates: start: 200506
  10. PRISTINAMYCIN [Concomitant]
     Indication: STAPHYLOCOCCAL INFECTION
     Route: 048
     Dates: start: 201106
  11. EFFEXOR XR [Concomitant]
     Indication: DEPRESSION
     Route: 048
     Dates: start: 201006
  12. SYMBICORT [Concomitant]
     Indication: ASTHMA
     Route: 055
     Dates: start: 199006
  13. SALBUTAMOL [Concomitant]
     Indication: ASTHMA
     Route: 055
     Dates: start: 199006
  14. CHLORSIG EYE DROPS [Concomitant]
     Indication: DRY EYE
     Dosage: 2 DROPS DAILY
     Route: 047
     Dates: start: 200806
  15. ONDANSETRON [Concomitant]
     Indication: NAUSEA
     Route: 048
     Dates: start: 201106
  16. METHADONE [Concomitant]
     Indication: PAIN
     Route: 048
     Dates: start: 201106
  17. NEXIUM [Concomitant]
     Indication: PROPHYLAXIS
     Route: 048
     Dates: start: 200806
  18. HALOPERIDOL [Concomitant]
     Indication: DEPRESSION
     Route: 048
     Dates: start: 201106
  19. HALOPERIDOL [Concomitant]
     Indication: PAIN
     Route: 065
     Dates: start: 201106
  20. AMOXYCILLIN [Concomitant]
     Indication: UPPER RESPIRATORY TRACT INFECTION
     Route: 065
     Dates: start: 20140325, end: 20140407

REACTIONS (1)
  - Gastroenteritis [Recovered/Resolved]
